FAERS Safety Report 18193620 (Version 2)
Quarter: 2020Q3

REPORT INFORMATION
  Report Type: Spontaneous
  Country: US (occurrence: US)
  Receive Date: 20200825
  Receipt Date: 20200901
  Transmission Date: 20201103
  Serious: Yes (Other)
  Sender: FDA-Public Use
  Company Number: US-009507513-2008USA011095

PATIENT
  Sex: Female

DRUGS (2)
  1. KEYTRUDA [Suspect]
     Active Substance: PEMBROLIZUMAB
     Indication: ENDOMETRIAL CANCER
     Dosage: UNK
     Route: 042
  2. LENVATINIB MESYLATE [Suspect]
     Active Substance: LENVATINIB MESYLATE
     Dosage: UNK

REACTIONS (9)
  - Spinal pain [Unknown]
  - Urinary tract infection [Unknown]
  - Neuropathy peripheral [Unknown]
  - Myalgia [Unknown]
  - Bone pain [Unknown]
  - Arthralgia [Unknown]
  - Neck pain [Unknown]
  - Insomnia [Unknown]
  - Restless legs syndrome [Unknown]
